FAERS Safety Report 6603225-X (Version None)
Quarter: 2010Q1

REPORT INFORMATION
  Report Type: 
  Country: None (occurrence: None)
  Receive Date: 20100219
  Receipt Date: 20100203
  Transmission Date: 20100710
  Serious: Yes (Death, Other)
  Sender: FDA-Public Use
  Company Number: ADE2008-0396

PATIENT
  Sex: Female
  Weight: 3.3 kg

DRUGS (2)
  1. CITALOPRAM HYDROBROMIDE [Suspect]
     Indication: DEPRESSION
     Dosage: 30MG - DAILY- TRANSPLAC.
     Route: 064
     Dates: start: 20080110
  2. FERROUS SULFATE TAB [Concomitant]

REACTIONS (3)
  - FOETAL HYPOKINESIA [None]
  - INTRA-UTERINE DEATH [None]
  - MATERNAL DRUGS AFFECTING FOETUS [None]
